FAERS Safety Report 21794172 (Version 2)
Quarter: 2023Q1

REPORT INFORMATION
  Report Type: Report from Study
  Country: US (occurrence: US)
  Receive Date: 20221229
  Receipt Date: 20230102
  Transmission Date: 20230418
  Serious: No
  Sender: FDA-Public Use
  Company Number: US-002147023-NVSC2022US300709

PATIENT
  Sex: Male

DRUGS (1)
  1. ENTRESTO [Suspect]
     Active Substance: SACUBITRIL\VALSARTAN
     Indication: Blood pressure increased
     Dosage: 97/103 MG, BID
     Route: 048
     Dates: start: 2020

REACTIONS (3)
  - Blood cholesterol increased [Unknown]
  - Product availability issue [Unknown]
  - Product use in unapproved indication [Unknown]
